FAERS Safety Report 7503511-5 (Version None)
Quarter: 2011Q2

REPORT INFORMATION
  Report Type: 
  Country: None (occurrence: None)
  Receive Date: 20110525
  Receipt Date: 20110516
  Transmission Date: 20111010
  Serious: Yes (Other)
  Sender: FDA-Public Use
  Company Number: BR-ASTRAZENECA-2011SE30287

PATIENT
  Age: 62 Year
  Sex: Female
  Weight: 81 kg

DRUGS (6)
  1. ATENOLOL [Suspect]
     Indication: HYPERTENSION
     Route: 048
     Dates: start: 20060101
  2. NEXIUM [Suspect]
     Indication: ULCER
     Route: 048
     Dates: start: 20110301, end: 20110501
  3. NEXIUM [Suspect]
     Route: 048
     Dates: start: 20110501
  4. GLYBURIDE [Concomitant]
     Indication: DIABETES MELLITUS
     Route: 048
     Dates: start: 20010101
  5. APROZIDE [Concomitant]
     Indication: HYPERTENSION
     Dosage: 150/12.5 MG
     Route: 048
     Dates: start: 20060101
  6. EUTHYROX [Concomitant]
     Indication: HYPERTHYROIDISM
     Route: 048
     Dates: start: 20060101

REACTIONS (4)
  - CEREBROVASCULAR ACCIDENT [None]
  - WEIGHT DECREASED [None]
  - GASTRIC ULCER [None]
  - NAUSEA [None]
